FAERS Safety Report 8835212 (Version 1)
Quarter: 2012Q4

REPORT INFORMATION
  Report Type: 
  Country: BR (occurrence: BR)
  Receive Date: 20121011
  Receipt Date: 20121011
  Transmission Date: 20130627
  Serious: Yes (Hospitalization)
  Sender: FDA-Public Use
  Company Number: BR-PFIZER INC-2012245293

PATIENT
  Age: 77 Year
  Sex: Female
  Weight: 95 kg

DRUGS (3)
  1. XALATAN [Suspect]
     Indication: GLAUCOMA
     Dosage: UNK
     Route: 047
     Dates: start: 2007, end: 2010
  2. APROZIDE [Concomitant]
     Indication: HYPERTENSION
     Dosage: 1 DF (300/12.5), 1x/day
     Dates: start: 2007
  3. LEXAPRO [Concomitant]
     Indication: RELAXATION THERAPY
     Dosage: 1 DF, 1x/day
     Dates: start: 2007

REACTIONS (3)
  - Cataract [Unknown]
  - Glaucoma [Unknown]
  - Dry eye [Unknown]
